FAERS Safety Report 10684550 (Version 2)
Quarter: 2015Q1

REPORT INFORMATION
  Report Type: Spontaneous
  Country: US (occurrence: None)
  Receive Date: 20141229
  Receipt Date: 20150106
  Transmission Date: 20150720
  Serious: Yes (Other)
  Sender: FDA-Public Use
  Company Number: 2014-US-016938

PATIENT
  Age: 36 Year
  Sex: Female

DRUGS (3)
  1. NORCO [Suspect]
     Active Substance: ACETAMINOPHEN\HYDROCODONE BITARTRATE
     Indication: PROCEDURAL PAIN
     Dosage: UNKNOWN DOSE
  2. OMEPRAZOLE ACID REDUCER (OMEPRAZOLE) [Concomitant]
  3. XYREM [Suspect]
     Active Substance: SODIUM OXYBATE
     Indication: NARCOLEPSY
     Route: 048
     Dates: start: 20141010, end: 201411

REACTIONS (2)
  - Cholecystectomy [None]
  - Somnolence [None]

NARRATIVE: CASE EVENT DATE: 201412
